FAERS Safety Report 9238422 (Version 1)
Quarter: 2013Q2

REPORT INFORMATION
  Report Type: Spontaneous
  Country: US (occurrence: None)
  Receive Date: 20130417
  Receipt Date: 20130417
  Transmission Date: 20140414
  Serious: No
  Sender: FDA-Public Use
  Company Number: None

PATIENT
  Age: 76 Year
  Sex: Female
  Weight: 71.67 kg

DRUGS (1)
  1. GLIMEPIRIDE [Suspect]
     Route: 048
     Dates: start: 20130315

REACTIONS (3)
  - Pruritus [None]
  - Rash [None]
  - Chest discomfort [None]
